FAERS Safety Report 16212643 (Version 2)
Quarter: 2019Q2

REPORT INFORMATION
  Report Type: Spontaneous
  Country: FR (occurrence: FR)
  Receive Date: 20190418
  Receipt Date: 20190618
  Transmission Date: 20190711
  Serious: Yes (Other)
  Sender: FDA-Public Use
  Company Number: FR-JNJFOC-20190424530

PATIENT
  Age: 4 Decade
  Sex: Male
  Weight: 65 kg

DRUGS (2)
  1. PROFENID [Concomitant]
     Active Substance: KETOPROFEN
     Indication: ANKYLOSING SPONDYLITIS
     Route: 065
  2. SIMPONI [Suspect]
     Active Substance: GOLIMUMAB
     Indication: ANKYLOSING SPONDYLITIS
     Route: 058
     Dates: start: 201306

REACTIONS (2)
  - Clear cell renal cell carcinoma [Unknown]
  - Renal cyst [Unknown]

NARRATIVE: CASE EVENT DATE: 2016
